FAERS Safety Report 6079363-X (Version None)
Quarter: 2009Q1

REPORT INFORMATION
  Report Type: 
  Country: None (occurrence: None)
  Receive Date: 20090216
  Receipt Date: 20090209
  Transmission Date: 20090719
  Serious: Yes (Hospitalization)
  Sender: FDA-Public Use
  Company Number: US-ABBOTT-09P-163-0502589-00

PATIENT
  Sex: Female

DRUGS (3)
  1. ZEMPLAR [Suspect]
     Indication: HYPERPARATHYROIDISM
     Dosage: PATIENT DOES NOT REMEMBER DOSE
     Dates: start: 20081103, end: 20081105
  2. VITAMIN D [Concomitant]
     Indication: VITAMIN SUPPLEMENTATION
     Dosage: PATIENT DOES NOT REMEMBER DOSE
     Dates: start: 20081101, end: 20081101
  3. LOTREL [Concomitant]
     Indication: HYPERTENSION
     Dosage: PATIENT DOES NOT REMEMBER DOSE

REACTIONS (6)
  - CONFUSIONAL STATE [None]
  - CONTUSION [None]
  - DIZZINESS [None]
  - FALL [None]
  - HEMIPARESIS [None]
  - HYPERCALCAEMIA [None]
